FAERS Safety Report 8976828 (Version 2)
Quarter: 2013Q1

REPORT INFORMATION
  Report Type: Spontaneous
  Country: US (occurrence: US)
  Receive Date: 20121220
  Receipt Date: 20130111
  Transmission Date: 20140127
  Serious: No
  Sender: FDA-Public Use
  Company Number: US-BIOGENIDEC-2012BI059280

PATIENT
  Sex: Female

DRUGS (3)
  1. AVONEX [Suspect]
     Indication: MULTIPLE SCLEROSIS
     Route: 030
     Dates: start: 20010701
  2. COPAXONE [Concomitant]
  3. REBIF [Concomitant]

REACTIONS (4)
  - Drug ineffective [Recovered/Resolved]
  - Blindness [Recovered/Resolved]
  - Gait disturbance [Recovered/Resolved]
  - Influenza like illness [Recovered/Resolved]
